FAERS Safety Report 5043806-0 (Version None)
Quarter: 2006Q2

REPORT INFORMATION
  Report Type: 
  Country: None (occurrence: None)
  Receive Date: 20060629
  Receipt Date: 20060621
  Transmission Date: 20061013
  Serious: Yes (Death)
  Sender: FDA-Public Use
  Company Number: 2006JP001687

PATIENT
  Age: 79 Year
  Sex: Male
  Weight: 70.6 kg

DRUGS (8)
  1. FUNGUARD [Suspect]
     Indication: FUNGAL INFECTION
     Dosage: 150 MG, UNKNOWN/D, IV DRIP
     Route: 041
     Dates: start: 20060418, end: 20060425
  2. DIFLUCAN [Concomitant]
  3. LEVOFLOXACIN [Concomitant]
  4. OMEGACIN                        (BIAPENEM) [Concomitant]
  5. BIKLIN                      (AMIKACIN SULFATE) [Concomitant]
  6. SULPERAZON                   (SULBACTAM SODIUM) [Concomitant]
  7. HABEKACIN                      (ARBEKACIN) [Concomitant]
  8. LASIX [Concomitant]

REACTIONS (7)
  - CONDITION AGGRAVATED [None]
  - INFECTION [None]
  - JAUNDICE [None]
  - MULTI-ORGAN FAILURE [None]
  - OEDEMA [None]
  - RENAL DISORDER [None]
  - SEPSIS [None]
